FAERS Safety Report 4899132-3 (Version None)
Quarter: 2006Q1

REPORT INFORMATION
  Report Type: 
  Country: None (occurrence: None)
  Receive Date: 20060202
  Receipt Date: 20060120
  Transmission Date: 20060701
  Serious: Yes (Life-Threatening, Hospitalization)
  Sender: FDA-Public Use
  Company Number: MY-SANOFI-SYNTHELABO-A01200600501

PATIENT
  Sex: Female
  Weight: 52 kg

DRUGS (3)
  1. ELOXATIN [Suspect]
     Route: 042
     Dates: start: 20051025, end: 20051025
  2. FLUOROURACIL [Concomitant]
     Dosage: 1000 MG/M2 PER DAY X2
     Route: 042
     Dates: start: 20051024, end: 20051025
  3. FOLINIC ACID [Concomitant]
     Dosage: 200 MG/M2 PER DAY X2
     Route: 042
     Dates: start: 20051024, end: 20051025

REACTIONS (12)
  - BLOOD POTASSIUM DECREASED [None]
  - BLOOD SODIUM DECREASED [None]
  - CYANOSIS CENTRAL [None]
  - DRUG TOXICITY [None]
  - DYSAESTHESIA [None]
  - DYSPNOEA [None]
  - FACIAL SPASM [None]
  - HYPOCALCAEMIA [None]
  - MUSCLE SPASMS [None]
  - RENAL FAILURE [None]
  - RENAL FAILURE ACUTE [None]
  - TETANY [None]
